FAERS Safety Report 9455325 (Version 1)
Quarter: 2013Q3

REPORT INFORMATION
  Report Type: Spontaneous
  Country: US (occurrence: US)
  Receive Date: 20130813
  Receipt Date: 20130813
  Transmission Date: 20140515
  Serious: No
  Sender: FDA-Public Use
  Company Number: US-JNJFOC-20130712995

PATIENT
  Sex: Male

DRUGS (1)
  1. PALIPERIDONE PALMITATE [Suspect]
     Indication: SCHIZOPHRENIA, RESIDUAL TYPE
     Route: 030
     Dates: start: 20130629, end: 2013

REACTIONS (2)
  - Fatigue [Unknown]
  - Drooling [Recovered/Resolved]
